FAERS Safety Report 14138632 (Version 2)
Quarter: 2017Q4

REPORT INFORMATION
  Report Type: Spontaneous
  Country: BR (occurrence: BR)
  Receive Date: 20171027
  Receipt Date: 20171110
  Transmission Date: 20180321
  Serious: Yes (Hospitalization, Other)
  Sender: FDA-Public Use
  Company Number: PHHY2017BR156461

PATIENT
  Age: 60 Year
  Sex: Female
  Weight: 40 kg

DRUGS (3)
  1. HYDERGINE [Suspect]
     Active Substance: ERGOLOID MESYLATES
     Indication: CEREBELLAR ISCHAEMIA
     Dosage: 45 GTT, QHS (45 DROPS EVERY NIGHT)
     Route: 048
     Dates: start: 1984
  2. TEGRETOL [Suspect]
     Active Substance: CARBAMAZEPINE
     Indication: EPILEPSY
     Dosage: 1.5 DF, QD (HALF A TABLET IN MORNING AND 1 TABLET AT NIGHT)
     Route: 048
     Dates: start: 1984
  3. CARBAMAZEPINE. [Concomitant]
     Active Substance: CARBAMAZEPINE
     Indication: EPILEPSY
     Dosage: 1.5 DF, QD (HALF TABLET IN THE MORNING AND 1 AT NIGHT)
     Route: 048

REACTIONS (8)
  - Malaise [Recovering/Resolving]
  - Abdominal pain upper [Unknown]
  - Wrong technique in product usage process [Recovering/Resolving]
  - Intestinal obstruction [Recovering/Resolving]
  - Dizziness [Unknown]
  - Headache [Unknown]
  - Labyrinthitis [Recovering/Resolving]
  - Meniere^s disease [Recovering/Resolving]

NARRATIVE: CASE EVENT DATE: 201708
